FAERS Safety Report 7200830-7 (Version None)
Quarter: 2010Q4

REPORT INFORMATION
  Report Type: 
  Country: None (occurrence: None)
  Receive Date: 20101228
  Receipt Date: 20101228
  Transmission Date: 20110411
  Serious: Yes (Hospitalization)
  Sender: FDA-Public Use
  Company Number: JP-PFIZER INC-2010179714

PATIENT
  Age: 60 Year
  Sex: Male

DRUGS (2)
  1. NORVASC [Suspect]
     Route: 048
  2. MICARDIS [Concomitant]
     Route: 048

REACTIONS (3)
  - HAEMORRHAGE [None]
  - PLATELET COUNT DECREASED [None]
  - WHITE BLOOD CELL COUNT DECREASED [None]
